FAERS Safety Report 22376570 (Version 1)
Quarter: 2023Q2

REPORT INFORMATION
  Report Type: Spontaneous
  Country: TZ (occurrence: TZ)
  Receive Date: 20230528
  Receipt Date: 20230528
  Transmission Date: 20230721
  Serious: Yes (Congenital Anomaly, Other)
  Sender: FDA-Public Use
  Company Number: TZ-STRIDES ARCOLAB LIMITED-2023SP007667

PATIENT
  Sex: Female

DRUGS (3)
  1. LAMIVUDINE [Suspect]
     Active Substance: LAMIVUDINE
     Indication: Product used for unknown indication
     Dosage: UNK, (MOTHER TOOK ONE COURSE FROM FIRST TRIMESTER)
     Route: 064
  2. TENOFOVIR DISOPROXIL FUMARATE [Suspect]
     Active Substance: TENOFOVIR DISOPROXIL FUMARATE
     Indication: Product used for unknown indication
     Dosage: UNK, (MOTHER TOOK ONE COURSE FROM FIRST TRIMESTER)
     Route: 064
  3. DOLUTEGRAVIR [Suspect]
     Active Substance: DOLUTEGRAVIR
     Indication: Product used for unknown indication
     Dosage: UNK, (MOTHER TOOK ONE COURSE FROM FIRST TRIMESTER)
     Route: 064

REACTIONS (4)
  - Atrial septal defect [Unknown]
  - Congenital teratoma [Unknown]
  - Arnold-Chiari malformation [Unknown]
  - Foetal exposure during pregnancy [Unknown]
